FAERS Safety Report 5365352-7 (Version None)
Quarter: 2007Q2

REPORT INFORMATION
  Report Type: 
  Country: None (occurrence: None)
  Receive Date: 20070621
  Receipt Date: 20070614
  Transmission Date: 20071010
  Serious: Yes (Death, Other)
  Sender: FDA-Public Use
  Company Number: GB-ROCHE-502922

PATIENT
  Age: 63 Year
  Sex: Female

DRUGS (4)
  1. CAPECITABINE [Suspect]
     Dosage: DOSE GIVEN ON DAYS 1-14 OF 21 DAY CYCLE
     Route: 065
     Dates: start: 20040901
  2. CAPECITABINE [Suspect]
     Route: 065
     Dates: end: 20050401
  3. MISTLETOE [Concomitant]
  4. UKRAIN [Concomitant]

REACTIONS (5)
  - ACUTE MYELOID LEUKAEMIA [None]
  - LYMPHADENOPATHY [None]
  - PALMAR-PLANTAR ERYTHRODYSAESTHESIA SYNDROME [None]
  - RECTAL CANCER [None]
  - URINARY TRACT INFECTION [None]
